FAERS Safety Report 21528590 (Version 1)
Quarter: 2022Q4

REPORT INFORMATION
  Report Type: Spontaneous
  Country: US (occurrence: US)
  Receive Date: 20221031
  Receipt Date: 20221031
  Transmission Date: 20230113
  Serious: No
  Sender: FDA-Public Use
  Company Number: US-BEIGENE USA INC-BGN-2022-009765

PATIENT

DRUGS (1)
  1. BRUKINSA [Suspect]
     Active Substance: ZANUBRUTINIB
     Indication: Lymphoma
     Dosage: UNK

REACTIONS (5)
  - Neck pain [Unknown]
  - Chills [Unknown]
  - Pyrexia [Unknown]
  - Intentional dose omission [Unknown]
  - Off label use [Unknown]
